FAERS Safety Report 14598359 (Version 1)
Quarter: 2018Q1

REPORT INFORMATION
  Report Type: Spontaneous
  Country: US (occurrence: US)
  Receive Date: 20180304
  Receipt Date: 20180304
  Transmission Date: 20180509
  Serious: No
  Sender: FDA-Public Use
  Company Number: None

PATIENT
  Age: 29 Year
  Sex: Female
  Weight: 63.96 kg

DRUGS (4)
  1. MIRENA [Suspect]
     Active Substance: LEVONORGESTREL
  2. FENUGREEK [Suspect]
     Active Substance: FENUGREEK SEED
  3. VITAMIN C [Concomitant]
     Active Substance: ASCORBIC ACID
  4. PRENATALS [Concomitant]

REACTIONS (9)
  - Muscle spasms [None]
  - Fatigue [None]
  - Nipple pain [None]
  - Mood swings [None]
  - Nausea [None]
  - Abdominal distension [None]
  - Acne [None]
  - Headache [None]
  - Food craving [None]
